FAERS Safety Report 24914627 (Version 2)
Quarter: 2025Q1

REPORT INFORMATION
  Report Type: Spontaneous
  Country: JP (occurrence: JP)
  Receive Date: 20250203
  Receipt Date: 20250213
  Transmission Date: 20250409
  Serious: Yes (Hospitalization, Other)
  Sender: AMGEN
  Company Number: JP-BEH-2025192739

PATIENT
  Age: 87 Year
  Sex: Male
  Weight: 77.4 kg

DRUGS (16)
  1. TAVNEOS [Suspect]
     Active Substance: AVACOPAN
     Indication: Microscopic polyangiitis
     Dosage: 60 MILLIGRAM, QD
     Route: 048
     Dates: start: 20221108, end: 202501
  2. TAVNEOS [Suspect]
     Active Substance: AVACOPAN
     Dosage: 20 MG, QD
     Route: 048
     Dates: start: 202501
  3. PREDONINE [Concomitant]
     Active Substance: PREDNISOLONE
     Indication: Microscopic polyangiitis
     Dosage: 3 MG, QD
     Route: 065
  4. ALFACALCIDOL [Concomitant]
     Active Substance: ALFACALCIDOL
     Route: 048
  5. ASPIRIN [Concomitant]
     Active Substance: ASPIRIN
     Indication: Enema administration
     Route: 048
  6. PRASUGREL HYDROCHLORIDE [Concomitant]
     Active Substance: PRASUGREL HYDROCHLORIDE
     Route: 048
  7. CARVEDILOL [Concomitant]
     Active Substance: CARVEDILOL
     Route: 048
  8. VALSARTAN [Concomitant]
     Active Substance: VALSARTAN
     Route: 048
  9. ATORVASTATIN [Concomitant]
     Active Substance: ATORVASTATIN
     Route: 048
  10. EZETIMIBE [Concomitant]
     Active Substance: EZETIMIBE
     Route: 048
  11. MIRABEGRON [Concomitant]
     Active Substance: MIRABEGRON
     Route: 048
  12. BONALON [Concomitant]
     Active Substance: ALENDRONATE SODIUM
     Route: 065
  13. MAGNESIUM OXIDE [Concomitant]
     Active Substance: MAGNESIUM OXIDE
     Route: 048
  14. SENNOSIDES [Concomitant]
     Active Substance: SENNOSIDES
     Route: 048
  15. NAFTOPIDIL [Concomitant]
     Active Substance: NAFTOPIDIL
     Route: 048
  16. EBASIN [Concomitant]
     Route: 048

REACTIONS (3)
  - Pneumonia [Recovered/Resolved]
  - Incorrect dose administered [Unknown]
  - Underdose [Unknown]

NARRATIVE: CASE EVENT DATE: 20241229
